FAERS Safety Report 5568431-4 (Version None)
Quarter: 2007Q4

REPORT INFORMATION
  Report Type: 
  Country: None (occurrence: None)
  Receive Date: 20071220
  Receipt Date: 20071218
  Transmission Date: 20080405
  Serious: Yes (Hospitalization)
  Sender: FDA-Public Use
  Company Number: AR-ELI_LILLY_AND_COMPANY-AR200711005403

PATIENT
  Age: 18 Year
  Sex: Female

DRUGS (2)
  1. HUMULIN N [Suspect]
     Dosage: 60 U, 2/D
     Route: 058
     Dates: start: 19990101
  2. HUMULIN N [Suspect]
     Dosage: 20 IU, EACH EVENING
     Route: 058
     Dates: start: 19990101

REACTIONS (4)
  - DRY MOUTH [None]
  - HYPERGLYCAEMIA [None]
  - HYPOGLYCAEMIA [None]
  - THIRST [None]
